FAERS Safety Report 13509692 (Version 2)
Quarter: 2017Q3

REPORT INFORMATION
  Report Type: Spontaneous
  Country: US (occurrence: US)
  Receive Date: 20170503
  Receipt Date: 20170803
  Transmission Date: 20171127
  Serious: No
  Sender: FDA-Public Use
  Company Number: US-SA-2017SA032939

PATIENT
  Sex: Female

DRUGS (14)
  1. ASPIRIN. [Concomitant]
     Active Substance: ASPIRIN
  2. CLOPIDOGREL [Concomitant]
     Active Substance: CLOPIDOGREL BISULFATE
  3. EZETIMIBE. [Concomitant]
     Active Substance: EZETIMIBE
  4. ATAZANAVIR [Concomitant]
     Active Substance: ATAZANAVIR
  5. EMTRICITABINE [Concomitant]
     Active Substance: EMTRICITABINE
  6. ALIROCUMAB PREFILLED PEN [Concomitant]
     Active Substance: ALIROCUMAB
     Dates: start: 20170129
  7. AMITRIPTYLINE [Concomitant]
     Active Substance: AMITRIPTYLINE
  8. CLONIDINE. [Concomitant]
     Active Substance: CLONIDINE
  9. VITAMIN D [Concomitant]
     Active Substance: CHOLECALCIFEROL
     Dosage: DOSE:2000 UNIT(S)
  10. PRALUENT [Suspect]
     Active Substance: ALIROCUMAB
     Route: 058
     Dates: start: 20170201, end: 20170215
  11. RITONAVIR. [Concomitant]
     Active Substance: RITONAVIR
  12. FUROSEMIDE. [Concomitant]
     Active Substance: FUROSEMIDE
  13. EFAVIRENZ [Concomitant]
     Active Substance: EFAVIRENZ
  14. ALDARA [Concomitant]
     Active Substance: IMIQUIMOD

REACTIONS (1)
  - CD4 lymphocytes decreased [Unknown]

NARRATIVE: CASE EVENT DATE: 20170203
